FAERS Safety Report 10611130 (Version 1)
Quarter: 2014Q4

REPORT INFORMATION
  Report Type: Spontaneous
  Country: None (occurrence: None)
  Receive Date: 20141124
  Receipt Date: 20141124
  Transmission Date: 20150529
  Serious: Yes (Other)
  Sender: FDA-Public Use
  Company Number: FK201405432

PATIENT
  Age: 70 Year
  Sex: Female
  Weight: 87 kg

DRUGS (5)
  1. ANASTROZOLE. [Suspect]
     Active Substance: ANASTROZOLE
     Indication: BREAST CANCER
     Route: 048
     Dates: start: 20130904
  2. SULFASALAZINE. [Concomitant]
     Active Substance: SULFASALAZINE
  3. BETAMETHASONE VALERATE. [Concomitant]
     Active Substance: BETAMETHASONE VALERATE
  4. MOMETASONE [Concomitant]
     Active Substance: MOMETASONE
  5. NAPROXEN. [Concomitant]
     Active Substance: NAPROXEN

REACTIONS (1)
  - Neutropenia [None]

NARRATIVE: CASE EVENT DATE: 20141106
